FAERS Safety Report 19762193 (Version 1)
Quarter: 2021Q3

REPORT INFORMATION
  Report Type: Spontaneous
  Country: US (occurrence: US)
  Receive Date: 20210826
  Receipt Date: 20210826
  Transmission Date: 20211014
  Serious: No
  Sender: FDA-Public Use
  Company Number: None

PATIENT

DRUGS (2)
  1. VERAPAMIL HCL 5MG/2ML [Suspect]
     Active Substance: VERAPAMIL HYDROCHLORIDE
     Dosage: ?          OTHER DOSE:5MG/2ML;?
     Route: 042
  2. NALOXONE HCL [Suspect]
     Active Substance: NALOXONE HYDROCHLORIDE
     Dosage: ?          OTHER ROUTE:INJECTABLE?

REACTIONS (6)
  - Product label issue [None]
  - Product packaging issue [None]
  - Product packaging confusion [None]
  - Physical product label issue [None]
  - Product label confusion [None]
  - Product storage error [None]
